FAERS Safety Report 19088931 (Version 1)
Quarter: 2021Q2

REPORT INFORMATION
  Report Type: Spontaneous
  Country: US (occurrence: RO)
  Receive Date: 20210403
  Receipt Date: 20210403
  Transmission Date: 20210717
  Serious: Yes (Hospitalization, Other)
  Sender: FDA-Public Use
  Company Number: RO-B.I. PHARMACEUTICALS,INC./RIDGEFIELD-2021-BI-093658

PATIENT
  Age: 67 Year
  Sex: Female

DRUGS (1)
  1. OFEV [Suspect]
     Active Substance: NINTEDANIB
     Indication: PRODUCT USED FOR UNKNOWN INDICATION

REACTIONS (9)
  - Idiopathic pulmonary fibrosis [Unknown]
  - Loss of personal independence in daily activities [Unknown]
  - Total lung capacity decreased [Unknown]
  - Oxygen saturation decreased [Unknown]
  - General physical health deterioration [Unknown]
  - Oxygen saturation decreased [Unknown]
  - Dependence on oxygen therapy [Unknown]
  - Tumour marker increased [Unknown]
  - Panic attack [Unknown]

NARRATIVE: CASE EVENT DATE: 202102
